FAERS Safety Report 6503993-1 (Version None)
Quarter: 2009Q4

REPORT INFORMATION
  Report Type: 
  Country: None (occurrence: None)
  Receive Date: 20091217
  Receipt Date: 20091204
  Transmission Date: 20100525
  Serious: Yes (Hospitalization)
  Sender: FDA-Public Use
  Company Number: US-PFIZER INC-2009274400

PATIENT
  Sex: Female
  Weight: 54 kg

DRUGS (12)
  1. CP-751,871 [Suspect]
     Indication: OVARIAN CANCER
     Dosage: 1111 MG, EVERY 3 WEEKS
     Route: 042
     Dates: start: 20090916, end: 20090916
  2. SUNITINIB MALATE [Suspect]
     Indication: OVARIAN CANCER
     Dosage: 25 MG, SCHEDULE 2/1
     Route: 048
     Dates: start: 20090916, end: 20090925
  3. OXYCONTIN [Concomitant]
  4. OXYCODONE [Concomitant]
  5. MAGNESIUM [Concomitant]
  6. VITAMIN D [Concomitant]
  7. ASCORBIC ACID [Concomitant]
  8. IRON [Concomitant]
  9. PROTONIX [Concomitant]
  10. ATIVAN [Concomitant]
  11. POTASSIUM [Concomitant]
  12. LOVENOX [Concomitant]

REACTIONS (1)
  - SMALL INTESTINAL PERFORATION [None]
